FAERS Safety Report 19950862 (Version 1)
Quarter: 2021Q4

REPORT INFORMATION
  Report Type: Spontaneous
  Country: ES (occurrence: ES)
  Receive Date: 20211013
  Receipt Date: 20211013
  Transmission Date: 20220303
  Serious: Yes (Hospitalization, Other)
  Sender: FDA-Public Use
  Company Number: ES-AEMPS-916320

PATIENT
  Age: 85 Year
  Sex: Male
  Weight: 80.3 kg

DRUGS (2)
  1. FUROSEMIDE [Suspect]
     Active Substance: FUROSEMIDE
     Indication: Cardiac failure
     Dosage: 40 MILLIGRAM, QD
     Dates: start: 20190725
  2. FUROSEMIDE [Suspect]
     Active Substance: FUROSEMIDE
     Indication: Oedema

REACTIONS (2)
  - Acute kidney injury [Recovered/Resolved]
  - Condition aggravated [Recovered/Resolved]

NARRATIVE: CASE EVENT DATE: 20200131
